FAERS Safety Report 4914139-5 (Version None)
Quarter: 2006Q1

REPORT INFORMATION
  Report Type: 
  Country: None (occurrence: None)
  Receive Date: 20060113
  Receipt Date: 20051114
  Transmission Date: 20060701
  Serious: No
  Sender: FDA-Public Use
  Company Number: 2005SP003971

PATIENT
  Age: 86 Year
  Sex: Female
  Weight: 51.7101 kg

DRUGS (1)
  1. LUNESTA [Suspect]
     Indication: INITIAL INSOMNIA
     Dosage: 3 MG; H; ORAL
     Route: 048
     Dates: start: 20050801, end: 20051101

REACTIONS (1)
  - DRUG WITHDRAWAL SYNDROME [None]
